FAERS Safety Report 18344178 (Version 2)
Quarter: 2020Q4

REPORT INFORMATION
  Report Type: Report from Study
  Country: JP (occurrence: JP)
  Receive Date: 20201005
  Receipt Date: 20201007
  Transmission Date: 20210114
  Serious: Yes (Life-Threatening, Hospitalization, Other)
  Sender: FDA-Public Use
  Company Number: JP-JNJFOC-A-CH2018-176295

PATIENT
  Age: 53 Year
  Sex: Female

DRUGS (43)
  1. EPOPROSTENOL ACT [Suspect]
     Active Substance: EPOPROSTENOL
     Dosage: 24 NG/KG, PER MIN
     Route: 042
     Dates: start: 20170111
  2. PREDONINE [Suspect]
     Active Substance: PREDNISOLONE
     Dosage: 12.5 MG, QD
     Route: 048
     Dates: start: 20160702, end: 20160712
  3. PREDONINE [Suspect]
     Active Substance: PREDNISOLONE
     Dosage: 15 MG, QD
     Route: 048
     Dates: start: 20160726, end: 20160808
  4. FEBURIC [Concomitant]
     Active Substance: FEBUXOSTAT
  5. PREDONINE [Suspect]
     Active Substance: PREDNISOLONE
     Dosage: 20 MG, QD
     Route: 048
     Dates: start: 20160622
  6. PREDONINE [Suspect]
     Active Substance: PREDNISOLONE
     Dosage: 10 MG, QD
     Route: 048
     Dates: start: 20160809, end: 20160822
  7. METHYCOBAL [Concomitant]
     Active Substance: METHYLCOBALAMIN
  8. LYRICA [Concomitant]
     Active Substance: PREGABALIN
  9. EPOPROSTENOL ACT [Suspect]
     Active Substance: EPOPROSTENOL
     Indication: PULMONARY ARTERIAL HYPERTENSION
     Dosage: 24 NG/KG, PER MIN
     Route: 042
     Dates: start: 20160708, end: 20160708
  10. PREDONINE [Suspect]
     Active Substance: PREDNISOLONE
     Dosage: 4.5 MG, QD
     Route: 048
     Dates: start: 20171002, end: 20171015
  11. SAMSCA [Concomitant]
     Active Substance: TOLVAPTAN
  12. FERROUS CITRATE NA [Concomitant]
     Active Substance: SODIUM FERROUS CITRATE
  13. ENTERONON-R [Concomitant]
     Active Substance: PROBIOTICS NOS
  14. BAKTAR [Concomitant]
     Active Substance: SULFAMETHOXAZOLE\TRIMETHOPRIM
  15. NEUROVITAN [Concomitant]
     Active Substance: VITAMINS
  16. CALONAL [Concomitant]
     Active Substance: ACETAMINOPHEN
  17. THYRADIN S [Concomitant]
     Active Substance: LEVOTHYROXINE SODIUM
  18. FUROSEMIDE. [Concomitant]
     Active Substance: FUROSEMIDE
  19. PREDONINE [Suspect]
     Active Substance: PREDNISOLONE
     Dosage: 20 MG, QD
     Route: 048
     Dates: start: 20160713, end: 20160725
  20. NEXIUM [Concomitant]
     Active Substance: ESOMEPRAZOLE MAGNESIUM
  21. OLOPATADINE HYDROCHLORIDE. [Concomitant]
     Active Substance: OLOPATADINE HYDROCHLORIDE
  22. LEVOFLOXACIN HEMIHYDRATE [Concomitant]
     Active Substance: LEVOFLOXACIN
  23. PREDONINE [Suspect]
     Active Substance: PREDNISOLONE
     Dosage: 7.5 MG, QD
     Route: 048
     Dates: start: 20160823, end: 20160905
  24. DIART [Concomitant]
     Active Substance: AZOSEMIDE
  25. LIXIANA [Concomitant]
     Active Substance: EDOXABAN TOSYLATE
  26. AZOSEMIDE [Concomitant]
     Active Substance: AZOSEMIDE
  27. PREDONINE [Suspect]
     Active Substance: PREDNISOLONE
     Indication: INTERSTITIAL LUNG DISEASE
     Dosage: 20 MG, QD
     Route: 042
     Dates: start: 20160615
  28. LOPEMIN [Concomitant]
  29. OPSUMIT [Suspect]
     Active Substance: MACITENTAN
     Indication: PULMONARY ARTERIAL HYPERTENSION
     Dosage: 10 MG, QD
     Route: 048
     Dates: start: 20160708
  30. PREDONINE [Suspect]
     Active Substance: PREDNISOLONE
     Dosage: 5 MG, QD
     Route: 048
     Dates: start: 20160906, end: 20171001
  31. SPIRONOLACTONE. [Concomitant]
     Active Substance: SPIRONOLACTONE
  32. SLOW-K [Concomitant]
     Active Substance: POTASSIUM CHLORIDE
  33. REVATIO [Concomitant]
     Active Substance: SILDENAFIL CITRATE
  34. KALGUT [Concomitant]
     Active Substance: DENOPAMINE
  35. CORTRIL [Concomitant]
     Active Substance: HYDROCORTISONE
  36. PREDONINE [Suspect]
     Active Substance: PREDNISOLONE
     Dosage: 15 MG, QD
     Route: 048
     Dates: start: 20160624
  37. PREDONINE [Suspect]
     Active Substance: PREDNISOLONE
     Dosage: 5 MG, QD
     Route: 048
     Dates: start: 20171016
  38. MIYA-BM [Concomitant]
     Active Substance: CLOSTRIDIUM BUTYRICUM SPORES STRAIN M-55
  39. LAMISIL [Concomitant]
     Active Substance: TERBINAFINE HYDROCHLORIDE
  40. CEREKINON [Concomitant]
     Active Substance: TRIMEBUTINE
  41. VITAMEDIN [Concomitant]
     Active Substance: CYANOCOBALAMIN\PYRIDOXINE HYDROCHLORIDE\THIAMINE
  42. BIO-THREE [Concomitant]
     Active Substance: HERBALS
  43. OXYGEN. [Concomitant]
     Active Substance: OXYGEN

REACTIONS (9)
  - Hypothyroidism [Recovering/Resolving]
  - Fracture [Recovering/Resolving]
  - Upper respiratory tract inflammation [Recovering/Resolving]
  - Tinea infection [Recovering/Resolving]
  - Thyroiditis subacute [Recovering/Resolving]
  - Herpes zoster [Recovering/Resolving]
  - Right ventricular failure [Recovering/Resolving]
  - Adrenal insufficiency [Recovered/Resolved]
  - Pneumonia [Recovering/Resolving]

NARRATIVE: CASE EVENT DATE: 20160713
